FAERS Safety Report 16134489 (Version 1)
Quarter: 2019Q1

REPORT INFORMATION
  Report Type: Spontaneous
  Country: US (occurrence: US)
  Receive Date: 20190329
  Receipt Date: 20190329
  Transmission Date: 20190418
  Serious: Yes (Death, Hospitalization, Other)
  Sender: FDA-Public Use
  Company Number: US-PFIZER INC-2019131241

PATIENT
  Age: 78 Year
  Sex: Male
  Weight: 65.77 kg

DRUGS (3)
  1. CALCIUM [Concomitant]
     Active Substance: CALCIUM
     Dosage: UNK
  2. BABY ASPIRIN [Concomitant]
     Active Substance: ASPIRIN
     Dosage: UNK
  3. NITROSTAT [Suspect]
     Active Substance: NITROGLYCERIN
     Indication: CHEST PAIN
     Dosage: 0.4 MG, AS NEEDED (0.4 MG, ONCE EVERY 5 MINUTES UP TO 3 DOSES)
     Route: 060

REACTIONS (2)
  - Myocardial infarction [Unknown]
  - Pneumonia [Fatal]

NARRATIVE: CASE EVENT DATE: 20190223
